FAERS Safety Report 9182996 (Version 1)
Quarter: 2013Q1

REPORT INFORMATION
  Report Type: Spontaneous
  Country: US (occurrence: US)
  Receive Date: 20130322
  Receipt Date: 20130322
  Transmission Date: 20140127
  Serious: Yes (Life-Threatening, Hospitalization)
  Sender: FDA-Public Use
  Company Number: US-BRISTOL-MYERS SQUIBB COMPANY-17192360

PATIENT
  Age: 77 Year
  Sex: Male

DRUGS (9)
  1. ERBITUX [Suspect]
     Indication: COLON CANCER METASTATIC
     Dosage: 1DF: 40 CC;1ST INFU
     Dates: start: 20121206
  2. IRINOTECAN [Concomitant]
  3. ATORVASTATIN [Concomitant]
  4. XELODA [Concomitant]
  5. DIGOXIN [Concomitant]
  6. FLUTICASONE [Concomitant]
     Dosage: NASAL SPRAY
  7. LEVOTHYROXIN [Concomitant]
  8. METOPROLOL SUCCINATE [Concomitant]
  9. WARFARIN [Concomitant]

REACTIONS (1)
  - Anaphylactic reaction [Recovering/Resolving]
